FAERS Safety Report 8242774-8 (Version None)
Quarter: 2012Q1

REPORT INFORMATION
  Report Type: 
  Country: None (occurrence: None)
  Receive Date: 20120329
  Receipt Date: 20120323
  Transmission Date: 20120608
  Serious: Yes (Hospitalization)
  Sender: FDA-Public Use
  Company Number: GB-SANOFI-AVENTIS-2012SA021252

PATIENT
  Age: 74 Year
  Sex: Female

DRUGS (1)
  1. INDAPAMIDE [Suspect]
     Route: 048

REACTIONS (3)
  - CONVULSION [None]
  - PAIN IN EXTREMITY [None]
  - BLOOD CREATINE PHOSPHOKINASE INCREASED [None]
